FAERS Safety Report 5723080-X (Version None)
Quarter: 2008Q2

REPORT INFORMATION
  Report Type: 
  Country: None (occurrence: None)
  Receive Date: 20080430
  Receipt Date: 20080428
  Transmission Date: 20081010
  Serious: Yes (Death, Life-Threatening, Hospitalization)
  Sender: FDA-Public Use
  Company Number: SE-JNJFOC-20070206534

PATIENT
  Sex: Female

DRUGS (3)
  1. CAELYX [Suspect]
     Indication: BREAST CANCER METASTATIC
     Dosage: 20.0 MG/M2
     Route: 042
  2. ATENOLOL [Concomitant]
     Indication: ARRHYTHMIA
     Route: 048
  3. ACETYLSALICYLIC ACID SRT [Concomitant]
     Indication: ARRHYTHMIA
     Route: 048

REACTIONS (2)
  - ACUTE RESPIRATORY DISTRESS SYNDROME [None]
  - ALVEOLITIS FIBROSING [None]
